FAERS Safety Report 7709757-5 (Version None)
Quarter: 2011Q3

REPORT INFORMATION
  Report Type: 
  Country: None (occurrence: None)
  Receive Date: 20110825
  Receipt Date: 20110613
  Transmission Date: 20111222
  Serious: No
  Sender: FDA-Public Use
  Company Number: US-BAYER-2011-051161

PATIENT
  Sex: Female

DRUGS (1)
  1. MIRENA [Suspect]
     Dosage: 20 MCG/24HR, CONT
     Route: 015
     Dates: start: 20100801

REACTIONS (7)
  - HYPOMENORRHOEA [None]
  - PREMENSTRUAL SYNDROME [None]
  - MOOD ALTERED [None]
  - ANXIETY [None]
  - METRORRHAGIA [None]
  - FATIGUE [None]
  - ABDOMINAL PAIN [None]
